FAERS Safety Report 10616518 (Version 1)
Quarter: 2014Q4

REPORT INFORMATION
  Report Type: Spontaneous
  Country: US (occurrence: None)
  Receive Date: 20141126
  Receipt Date: 20141126
  Transmission Date: 20150529
  Serious: No
  Sender: FDA-Public Use
  Company Number: None

PATIENT
  Age: 3 Year
  Sex: Female
  Weight: 17 kg

DRUGS (3)
  1. MONTELUKAST SODIUM CHEWABLE TABLETS [Suspect]
     Active Substance: MONTELUKAST SODIUM
     Indication: SWELLING
     Dosage: 1 ONCE DAILY TAKEN BY MOUTH
     Route: 048
     Dates: start: 20141113, end: 20141120
  2. MONTELUKAST SODIUM CHEWABLE TABLETS [Suspect]
     Active Substance: MONTELUKAST SODIUM
     Indication: COUGH
     Dosage: 1 ONCE DAILY TAKEN BY MOUTH
     Route: 048
     Dates: start: 20141113, end: 20141120
  3. MONTELUKAST SODIUM CHEWABLE TABLETS [Suspect]
     Active Substance: MONTELUKAST SODIUM
     Indication: ADENOIDAL DISORDER
     Dosage: 1 ONCE DAILY TAKEN BY MOUTH
     Route: 048
     Dates: start: 20141113, end: 20141120

REACTIONS (3)
  - Bruxism [None]
  - Posture abnormal [None]
  - Unresponsive to stimuli [None]

NARRATIVE: CASE EVENT DATE: 20141121
